FAERS Safety Report 7346147-1 (Version None)
Quarter: 2011Q1

REPORT INFORMATION
  Report Type: 
  Country: None (occurrence: None)
  Receive Date: 20110301
  Receipt Date: 20110218
  Transmission Date: 20110831
  Serious: Yes (Other)
  Sender: FDA-Public Use
  Company Number: 027940

PATIENT
  Age: 16 Year
  Sex: Female

DRUGS (1)
  1. XYZAL [Suspect]
     Indication: URTICARIA CHRONIC
     Dosage: (5 MG QD ORAL)
     Route: 048
     Dates: start: 20110117, end: 20110125

REACTIONS (2)
  - HYPOKALAEMIA [None]
  - VASCULITIS [None]
